FAERS Safety Report 7783200-2 (Version None)
Quarter: 2011Q3

REPORT INFORMATION
  Report Type: 
  Country: None (occurrence: None)
  Receive Date: 20110928
  Receipt Date: 20110922
  Transmission Date: 20111222
  Serious: Yes (Other)
  Sender: FDA-Public Use
  Company Number: DE-SANOFI-AVENTIS-2011SA061948

PATIENT
  Age: 70 Year
  Sex: Male

DRUGS (1)
  1. MULTAQ [Suspect]
     Route: 048
     Dates: start: 20110101

REACTIONS (1)
  - BLOOD CREATININE INCREASED [None]
